FAERS Safety Report 5047821-2 (Version None)
Quarter: 2006Q3

REPORT INFORMATION
  Report Type: 
  Country: None (occurrence: None)
  Receive Date: 20060711
  Receipt Date: 20051209
  Transmission Date: 20061208
  Serious: Yes (Other)
  Sender: FDA-Public Use
  Company Number: FI-AMGEN-UK161340

PATIENT
  Sex: Female
  Weight: 48 kg

DRUGS (11)
  1. ARANESP [Suspect]
     Indication: RENAL FAILURE CHRONIC
     Route: 058
     Dates: start: 20050517
  2. MYFORTIC [Suspect]
     Route: 065
     Dates: start: 20050407, end: 20060123
  3. CELLCEPT [Suspect]
     Route: 065
     Dates: start: 20050316, end: 20050406
  4. COZAAR [Concomitant]
     Route: 048
     Dates: start: 20050511
  5. ETALPHA [Concomitant]
     Route: 048
     Dates: start: 20050726
  6. FURESIS [Concomitant]
     Route: 048
     Dates: start: 20051102
  7. KALCIPOS [Concomitant]
     Route: 048
     Dates: start: 20050511
  8. LESCOL [Concomitant]
     Route: 048
     Dates: start: 20050511
  9. MEDROL [Concomitant]
     Route: 048
     Dates: start: 20050906
  10. IRON [Concomitant]
     Route: 048
     Dates: start: 20050511
  11. SOMAC [Concomitant]
     Route: 048
     Dates: start: 20050511

REACTIONS (1)
  - ANAEMIA [None]
